FAERS Safety Report 9473725 (Version 2)
Quarter: 2013Q3

REPORT INFORMATION
  Report Type: Spontaneous
  Country: US (occurrence: US)
  Receive Date: 20130823
  Receipt Date: 20130823
  Transmission Date: 20140515
  Serious: No
  Sender: FDA-Public Use
  Company Number: US-BRISTOL-MYERS SQUIBB COMPANY-16937278

PATIENT
  Age: 83 Year
  Sex: Male
  Weight: 69.84 kg

DRUGS (2)
  1. SPRYCEL [Suspect]
     Indication: CHRONIC MYELOID LEUKAEMIA
  2. VITAMINS [Concomitant]

REACTIONS (2)
  - Weight increased [Unknown]
  - Oedema peripheral [Unknown]
